FAERS Safety Report 23820662 (Version 1)
Quarter: 2024Q2

REPORT INFORMATION
  Report Type: Spontaneous
  Country: US (occurrence: US)
  Receive Date: 20240506
  Receipt Date: 20240506
  Transmission Date: 20240716
  Serious: Yes (Other)
  Sender: FDA-Public Use
  Company Number: US-PFIZER INC-202400099902

PATIENT
  Age: 77 Year
  Sex: Female
  Weight: 97.52 kg

DRUGS (3)
  1. VYNDAMAX [Interacting]
     Active Substance: TAFAMIDIS
     Dosage: UNK
  2. COLCHICINE [Interacting]
     Active Substance: COLCHICINE
     Indication: Gout
     Dosage: 0.6 MG, 2X/DAY
  3. PROCRIT [Suspect]
     Active Substance: ERYTHROPOIETIN
     Indication: Haemoglobin decreased
     Dosage: 10000 IU, WEEKLY

REACTIONS (2)
  - Gout [Not Recovered/Not Resolved]
  - Drug interaction [Unknown]
